FAERS Safety Report 9629214 (Version 2)
Quarter: 2013Q4

REPORT INFORMATION
  Report Type: Spontaneous
  Country: JP (occurrence: JP)
  Receive Date: 20131017
  Receipt Date: 20131104
  Transmission Date: 20140711
  Serious: Yes (Life-Threatening, Other)
  Sender: FDA-Public Use
  Company Number: JP-ELI_LILLY_AND_COMPANY-JP201310004668

PATIENT
  Age: 52 Year
  Sex: Female
  Weight: 44 kg

DRUGS (4)
  1. GEMZAR [Suspect]
     Indication: ADENOCARCINOMA PANCREAS
     Dosage: 1200 MG, OTHER
     Route: 042
     Dates: start: 20130227, end: 20130807
  2. SEROTONE [Concomitant]
     Indication: PROPHYLAXIS OF NAUSEA AND VOMITING
     Dosage: 10 MG, UNKNOWN
     Route: 042
     Dates: start: 20130227, end: 20130807
  3. LOXONIN [Concomitant]
     Indication: CANCER PAIN
     Dosage: 60 MG, TID
     Route: 048
     Dates: start: 20130220, end: 20130912
  4. NEXIUM                             /01479302/ [Concomitant]
     Indication: GASTRITIS PROPHYLAXIS
     Dosage: 20 MG, UNKNOWN
     Route: 048
     Dates: start: 20130220, end: 20130912

REACTIONS (3)
  - Renal failure [Not Recovered/Not Resolved]
  - Anaemia [Unknown]
  - Platelet count decreased [Unknown]
